APPROVED DRUG PRODUCT: IHEEZO
Active Ingredient: CHLOROPROCAINE HYDROCHLORIDE
Strength: 3%
Dosage Form/Route: GEL;OPHTHALMIC
Application: N216227 | Product #001
Applicant: HARROW EYE LLC
Approved: Sep 27, 2022 | RLD: Yes | RS: Yes | Type: RX

PATENTS:
Patent 10792271 | Expires: Sep 15, 2038
Patent 11969403 | Expires: May 14, 2039